FAERS Safety Report 18364695 (Version 1)
Quarter: 2020Q4

REPORT INFORMATION
  Report Type: Spontaneous
  Country: US (occurrence: US)
  Receive Date: 20201009
  Receipt Date: 20201009
  Transmission Date: 20210114
  Serious: Yes (Death)
  Sender: FDA-Public Use
  Company Number: None

PATIENT
  Age: 55 Year
  Sex: Male
  Weight: 72.58 kg

DRUGS (22)
  1. FAMOTIDINE 20MG PO DAILY [Concomitant]
     Dates: start: 20200726, end: 20200813
  2. ZINC SULFATE 220MG PO DAILY [Concomitant]
     Dates: start: 20200708, end: 20200811
  3. CEFTAZIDIME/AVIBACTAM 2.5GM IV Q8HR [Concomitant]
     Dates: start: 20200905, end: 20200915
  4. VANCOMYCIN PER PROTOCOL [Concomitant]
     Dates: start: 20200724, end: 20200912
  5. ASCORBIC ACID 1000MG PO BID [Concomitant]
     Dates: start: 20200707, end: 20200802
  6. CEFTRIAXONE 1GM IV DAILY [Concomitant]
     Dates: start: 20200707, end: 20200711
  7. REMDESIVIR. [Suspect]
     Active Substance: REMDESIVIR
     Indication: COVID-19 PNEUMONIA
     Route: 042
     Dates: start: 20200708, end: 20200711
  8. MELATONIN 9MG PO QHS [Concomitant]
     Dates: start: 20200719, end: 20200723
  9. FLUCONAZOLE 800MG IV ONCE, THEN 400MG IV DAILY X2DAYS, THEN X5DAYS [Concomitant]
     Dates: start: 20200725, end: 20200910
  10. TOBRAMYCIN 140MG IV ONCE [Concomitant]
     Dates: start: 20200904, end: 20200904
  11. CEFEPIME 1GM IV Q6HR [Concomitant]
     Dates: start: 20200719, end: 20200724
  12. CEFEPIME 2GM IV Q8HR [Concomitant]
     Dates: start: 20200908, end: 20200911
  13. DEXAMETHASONE 6MG IV DAILY [Concomitant]
     Dates: start: 20200707, end: 20200717
  14. CONVALESCENT PLASMA [Concomitant]
     Active Substance: HUMAN PLASMA
     Dates: start: 20200710, end: 20200710
  15. SULFAMETHOXAZOLE/TRIMETHOPRIM 1600/320MG IV Q12HR [Concomitant]
     Dates: start: 20200913, end: 20200915
  16. METHYLPREDNISOLONE 60MG IV Q6HR [Concomitant]
     Dates: start: 20200719, end: 20200904
  17. METRONIDAZOLE 500MG IV Q8HR [Concomitant]
     Dates: start: 20200906, end: 20200915
  18. MICAFUNGIN 100MG IV DAILY [Concomitant]
     Dates: start: 20200727, end: 20200809
  19. AZITHROMYCIN 500MG IV/PO DAILY [Concomitant]
     Dates: start: 20200707, end: 20200711
  20. MEROPENEM RENALLY DOSED [Concomitant]
     Dates: start: 20200724, end: 20200913
  21. MICAFUNGIN 100MG IV DAILY [Concomitant]
     Dates: start: 20200904, end: 20200915
  22. HYDROXYCHLOROQUINE 400MG PO Q12HR [Concomitant]
     Dates: start: 20200729, end: 20200813

REACTIONS (2)
  - Pulseless electrical activity [None]
  - Respiratory failure [None]

NARRATIVE: CASE EVENT DATE: 20200915
